FAERS Safety Report 13304879 (Version 1)
Quarter: 2017Q1

REPORT INFORMATION
  Report Type: Spontaneous
  Country: US (occurrence: US)
  Receive Date: 20170307
  Receipt Date: 20170307
  Transmission Date: 20170428
  Serious: Yes (Other)
  Sender: FDA-Public Use
  Company Number: None

PATIENT
  Age: 39 Year
  Sex: Female
  Weight: 113.8 kg

DRUGS (1)
  1. LISINOPRIL. [Suspect]
     Active Substance: LISINOPRIL
     Indication: HYPERTENSION
     Dosage: ?          QUANTITY:30 TABLET(S);?
     Route: 048
     Dates: start: 20170307

REACTIONS (1)
  - Rash [None]

NARRATIVE: CASE EVENT DATE: 20160125
